FAERS Safety Report 15494493 (Version 1)
Quarter: 2018Q4

REPORT INFORMATION
  Report Type: Spontaneous
  Country: US (occurrence: US)
  Receive Date: 20181012
  Receipt Date: 20181012
  Transmission Date: 20190205
  Serious: No
  Sender: FDA-Public Use
  Company Number: US-BAYER-2018-188963

PATIENT
  Age: 41 Year
  Sex: Female

DRUGS (4)
  1. LAMOTRIGINE. [Suspect]
     Active Substance: LAMOTRIGINE
     Dosage: UNK
  2. MIRENA [Suspect]
     Active Substance: LEVONORGESTREL
     Indication: MENORRHAGIA
  3. LITHIUM. [Suspect]
     Active Substance: LITHIUM
     Dosage: UNK
  4. MIRENA [Suspect]
     Active Substance: LEVONORGESTREL
     Indication: CONTRACEPTION
     Dosage: 20 MCG/24HR, CONT
     Route: 015
     Dates: start: 20180920

REACTIONS (4)
  - Irritability [Not Recovered/Not Resolved]
  - Drug interaction [Not Recovered/Not Resolved]
  - Depression [Not Recovered/Not Resolved]
  - Mania [None]

NARRATIVE: CASE EVENT DATE: 201809
